FAERS Safety Report 4871647-3 (Version None)
Quarter: 2005Q4

REPORT INFORMATION
  Report Type: 
  Country: None (occurrence: None)
  Receive Date: 20051230
  Receipt Date: 20051220
  Transmission Date: 20060501
  Serious: Yes (Hospitalization)
  Sender: FDA-Public Use
  Company Number: ERP05000179

PATIENT
  Age: 84 Year
  Sex: Female

DRUGS (8)
  1. ACTONEL [Suspect]
     Indication: OSTEOPOROSIS
     Dosage: 35 MG, 1/WEEK, ORAL
     Route: 048
     Dates: start: 20040128, end: 20051115
  2. LORTAAN (LOSARTAN POTASSIUM) [Concomitant]
  3. ZOLOFT [Concomitant]
  4. REQUIP [Concomitant]
  5. FULCRO (FENOFIBRATE) [Concomitant]
  6. ASCRIPTIN (MAGNESIUM HYDROXIDE, ALUMINIUM HYDROXIDE, ACETYLSALICYLIC A [Concomitant]
  7. .. [Concomitant]
  8. .. [Concomitant]

REACTIONS (3)
  - ANAEMIA [None]
  - CARDIAC FAILURE [None]
  - OESOPHAGITIS HAEMORRHAGIC [None]
